FAERS Safety Report 5381208-8 (Version None)
Quarter: 2007Q3

REPORT INFORMATION
  Report Type: 
  Country: None (occurrence: None)
  Receive Date: 20070706
  Receipt Date: 20070625
  Transmission Date: 20080115
  Serious: Yes (Other)
  Sender: FDA-Public Use
  Company Number: US-PFIZER INC-2007053346

PATIENT
  Sex: Female
  Weight: 57.2 kg

DRUGS (5)
  1. CHANTIX [Suspect]
     Indication: SMOKING CESSATION THERAPY
  2. FEMHRT [Concomitant]
  3. ZOLPIDEM TARTRATE [Concomitant]
  4. PLAQUENIL [Concomitant]
  5. FOSAMAX [Concomitant]

REACTIONS (5)
  - ABNORMAL FAECES [None]
  - DYSPEPSIA [None]
  - FAECES DISCOLOURED [None]
  - FLATULENCE [None]
  - INCONTINENCE [None]
